FAERS Safety Report 9334329 (Version 1)
Quarter: 2013Q2

REPORT INFORMATION
  Report Type: Spontaneous
  Country: US (occurrence: US)
  Receive Date: 20130606
  Receipt Date: 20130606
  Transmission Date: 20140414
  Serious: No
  Sender: FDA-Public Use
  Company Number: US-AMGEN-USASP2013004428

PATIENT
  Age: 65 Year
  Sex: Male
  Weight: 67.57 kg

DRUGS (9)
  1. XGEVA [Suspect]
     Indication: METASTASES TO BONE
     Dosage: 120 MG, QMO
     Route: 058
     Dates: start: 20121106
  2. XGEVA [Suspect]
     Dosage: 120 MG, QMO
     Route: 058
     Dates: start: 20121211
  3. XGEVA [Suspect]
     Dosage: 120 MG, QMO
     Route: 058
     Dates: start: 20130115
  4. XGEVA [Suspect]
     Dosage: 120 MG, QMO
     Route: 058
     Dates: start: 20130219
  5. XGEVA [Suspect]
  6. LUPRON [Concomitant]
     Indication: HORMONE THERAPY
     Dosage: UNK UNK, Q3MO
     Route: 030
     Dates: start: 20121214
  7. CALCIUM [Concomitant]
  8. MULTIVITAMIN                       /00097801/ [Concomitant]
  9. CASODEX [Concomitant]
     Dosage: UNK UNK, QD
     Route: 048

REACTIONS (3)
  - Blood alkaline phosphatase increased [Unknown]
  - Bone pain [Unknown]
  - Fatigue [Unknown]
